FAERS Safety Report 15645449 (Version 2)
Quarter: 2018Q4

REPORT INFORMATION
  Report Type: Report from Study
  Country: JP (occurrence: JP)
  Receive Date: 20181121
  Receipt Date: 20181213
  Transmission Date: 20190205
  Serious: Yes (Hospitalization, Other)
  Sender: FDA-Public Use
  Company Number: JP-EISAI MEDICAL RESEARCH-EC-2018-048068

PATIENT
  Age: 16 Year
  Sex: Male
  Weight: 46 kg

DRUGS (7)
  1. FYCOMPA [Suspect]
     Active Substance: PERAMPANEL
     Indication: PARTIAL SEIZURES
     Route: 048
     Dates: start: 20170726, end: 20181107
  2. LACOSAMIDE. [Concomitant]
     Active Substance: LACOSAMIDE
  3. LEVOCARNITINE. [Concomitant]
     Active Substance: LEVOCARNITINE
  4. SODIUM VALPROATE [Concomitant]
     Active Substance: VALPROATE SODIUM
  5. FYCOMPA [Suspect]
     Active Substance: PERAMPANEL
     Route: 048
     Dates: start: 20181108, end: 20181109
  6. LACTOMIN [Concomitant]
     Active Substance: LACTOBACILLUS ACIDOPHILUS
  7. MYSTAN [Concomitant]
     Active Substance: CLOBAZAM

REACTIONS (4)
  - Platelet count decreased [Recovered/Resolved]
  - Altered state of consciousness [Recovered/Resolved]
  - Lymphocyte count decreased [Recovered/Resolved]
  - Coma [Recovered/Resolved]

NARRATIVE: CASE EVENT DATE: 20181104
